FAERS Safety Report 8299619-X (Version None)
Quarter: 2012Q2

REPORT INFORMATION
  Report Type: 
  Country: None (occurrence: None)
  Receive Date: 20120419
  Receipt Date: 20110222
  Transmission Date: 20120825
  Serious: Yes (Hospitalization)
  Sender: FDA-Public Use
  Company Number: FR-GLAXOSMITHKLINE-B0703677A

PATIENT
  Sex: Female

DRUGS (3)
  1. NABUMETONE [Suspect]
     Indication: ARTHRALGIA
     Dosage: 1G PER DAY
     Route: 048
     Dates: start: 20110208, end: 20110217
  2. LANSOPRAZOLE [Concomitant]
     Route: 048
     Dates: start: 20110208, end: 20110217
  3. CRESTOR [Concomitant]
     Route: 065

REACTIONS (3)
  - ANGIOEDEMA [None]
  - FACE OEDEMA [None]
  - DYSPHAGIA [None]
